FAERS Safety Report 5851800-2 (Version None)
Quarter: 2008Q3

REPORT INFORMATION
  Report Type: 
  Country: None (occurrence: None)
  Receive Date: 20080820
  Receipt Date: 20080812
  Transmission Date: 20090109
  Serious: Yes (Other)
  Sender: FDA-Public Use
  Company Number: US-JNJCH-2008021323

PATIENT
  Age: 61 Year
  Sex: Female
  Weight: 69.4 kg

DRUGS (1)
  1. LISTERINE WHITENING QUICK DISSOLVING STRIPS [Suspect]
     Indication: DENTAL CARE
     Dosage: TEXT:4 STRIPS DAILY
     Route: 048
     Dates: start: 20080729, end: 20080808

REACTIONS (2)
  - APPLICATION SITE BURN [None]
  - OEDEMA MOUTH [None]
